FAERS Safety Report 4352853-3 (Version None)
Quarter: 2004Q2

REPORT INFORMATION
  Report Type: 
  Country: None (occurrence: None)
  Receive Date: 20040504
  Receipt Date: 20040430
  Transmission Date: 20050107
  Serious: Yes (Life-Threatening, Hospitalization)
  Sender: FDA-Public Use
  Company Number: US-BRISTOL-MYERS SQUIBB COMPANY-12575569

PATIENT
  Age: 12 Month
  Sex: Female

DRUGS (7)
  1. COUMADIN [Suspect]
     Indication: PROPHYLAXIS
     Dosage: VARIABLE DOSE
     Route: 050
     Dates: start: 20030101
  2. LASIX [Concomitant]
     Dates: start: 20031201
  3. DIGOXIN [Concomitant]
     Dates: start: 20031204
  4. ALDACTONE [Concomitant]
     Dates: start: 20031204
  5. ENALAPRIL MALEATE [Concomitant]
     Dates: start: 20031204
  6. CALCIUM CARBONATE [Concomitant]
     Dates: start: 20031204
  7. ZANTAC [Concomitant]
     Dates: start: 20031204

REACTIONS (6)
  - ANAEMIA [None]
  - EPISTAXIS [None]
  - HAEMATEMESIS [None]
  - HYPOTENSION [None]
  - MELAENA [None]
  - RENAL FAILURE [None]
